FAERS Safety Report 5679267-8 (Version None)
Quarter: 2008Q1

REPORT INFORMATION
  Report Type: 
  Country: None (occurrence: None)
  Receive Date: 20080325
  Receipt Date: 20080320
  Transmission Date: 20080703
  Serious: Yes (Other)
  Sender: FDA-Public Use
  Company Number: US-ASTRAZENECA-2006UW10655

PATIENT
  Age: 44 Year
  Sex: Male
  Weight: 68 kg

DRUGS (9)
  1. SEROQUEL [Suspect]
     Indication: SCHIZOAFFECTIVE DISORDER
     Dosage: 700 MG HS AND 200 MG DURING THE DAY
     Route: 048
     Dates: start: 20040101
  2. SEROQUEL [Suspect]
     Route: 048
     Dates: start: 20050101
  3. TRAZODONE HCL [Concomitant]
  4. RISPERDAL [Concomitant]
  5. COGENTIN [Concomitant]
  6. DEPAKOTE [Concomitant]
  7. VYTORIN [Concomitant]
  8. PEPCID [Concomitant]
  9. LORTAB [Concomitant]

REACTIONS (5)
  - APPENDICECTOMY [None]
  - REFLUX OESOPHAGITIS [None]
  - STOMACH DISCOMFORT [None]
  - VISUAL ACUITY REDUCED [None]
  - WEIGHT INCREASED [None]
